FAERS Safety Report 21906077 (Version 1)
Quarter: 2023Q1

REPORT INFORMATION
  Report Type: Spontaneous
  Country: US (occurrence: US)
  Receive Date: 20230124
  Receipt Date: 20230124
  Transmission Date: 20230418
  Serious: No
  Sender: FDA-Public Use
  Company Number: US-BoehringerIngelheim-2023-BI-214568

PATIENT
  Sex: Female

DRUGS (1)
  1. SPIRIVA HANDIHALER [Suspect]
     Active Substance: TIOTROPIUM BROMIDE MONOHYDRATE
     Indication: Product used for unknown indication

REACTIONS (3)
  - Incorrect route of product administration [Unknown]
  - Cough [Unknown]
  - Vomiting [Unknown]

NARRATIVE: CASE EVENT DATE: 20230124
